FAERS Safety Report 5697687-2 (Version None)
Quarter: 2008Q2

REPORT INFORMATION
  Report Type: 
  Country: None (occurrence: None)
  Receive Date: 20080408
  Receipt Date: 20080402
  Transmission Date: 20081010
  Serious: Yes (Other)
  Sender: FDA-Public Use
  Company Number: A0719230A

PATIENT
  Age: 55 Year
  Sex: Female
  Weight: 48.2 kg

DRUGS (5)
  1. COMBIVIR [Suspect]
     Indication: HIV INFECTION
     Dosage: 3TAB TWICE PER DAY
     Route: 048
     Dates: start: 20071116
  2. EFAVIRENZ [Suspect]
     Indication: HIV INFECTION
     Dosage: 600MG AT NIGHT
     Route: 048
     Dates: start: 20071116
  3. BACTRIM [Concomitant]
  4. HYDROCHLOROTHIAZIDE [Concomitant]
  5. IRON + FOLIC ACID [Concomitant]

REACTIONS (5)
  - ANOREXIA [None]
  - CHOLECYSTITIS ACUTE [None]
  - HEPATOMEGALY [None]
  - JAUNDICE [None]
  - PYREXIA [None]
